FAERS Safety Report 20169605 (Version 1)
Quarter: 2021Q4

REPORT INFORMATION
  Report Type: Other
  Country: US (occurrence: None)
  Receive Date: 20211210
  Receipt Date: 20211210
  Transmission Date: 20220303
  Serious: Yes (Hospitalization)
  Sender: FDA-Public Use
  Company Number: US-ROCHE-1861227

PATIENT
  Sex: Female

DRUGS (2)
  1. CELLCEPT [Suspect]
     Active Substance: MYCOPHENOLATE MOFETIL
     Indication: Systemic lupus erythematosus
     Route: 048
  2. CELLCEPT [Suspect]
     Active Substance: MYCOPHENOLATE MOFETIL
     Indication: Lupus nephritis
     Dosage: TAKE 3 TABLETS 2 TIMES A DAY
     Route: 048

REACTIONS (4)
  - Gastroenteritis viral [Unknown]
  - Gastrointestinal disorder [Unknown]
  - Product dose omission in error [Unknown]
  - Off label use [Unknown]
